FAERS Safety Report 5079842-8 (Version None)
Quarter: 2006Q3

REPORT INFORMATION
  Report Type: 
  Country: None (occurrence: None)
  Receive Date: 20060809
  Receipt Date: 20060801
  Transmission Date: 20061208
  Serious: Yes (Hospitalization, Other)
  Sender: FDA-Public Use
  Company Number: 2006087907

PATIENT
  Sex: Male

DRUGS (5)
  1. ZOLOFT [Suspect]
     Indication: DEPRESSION
     Dosage: 100 MG (100 MG, 1 IN 1 D), ORAL
     Route: 048
     Dates: start: 20060712, end: 20060713
  2. KERLONE [Suspect]
     Indication: BLOOD PRESSURE
     Dosage: 10 MG (10 MG, 1 IN 1 D)
  3. VYTORIN [Suspect]
     Indication: BLOOD PRESSURE
     Dosage: 20/10MG (1 IN 1 D)
  4. ATACAND [Suspect]
     Indication: BLOOD PRESSURE
     Dosage: 16 MG (16 MG, 1 IN 1 D)
  5. ANTIHYPERTENSIVES [Concomitant]

REACTIONS (10)
  - BLOOD PRESSURE DECREASED [None]
  - DEPRESSED LEVEL OF CONSCIOUSNESS [None]
  - DIARRHOEA [None]
  - DIZZINESS [None]
  - DRUG TOLERANCE DECREASED [None]
  - FLATULENCE [None]
  - HEADACHE [None]
  - HYPERHIDROSIS [None]
  - PAIN [None]
  - STOMACH DISCOMFORT [None]
